FAERS Safety Report 25214247 (Version 2)
Quarter: 2025Q2

REPORT INFORMATION
  Report Type: Spontaneous
  Country: US (occurrence: US)
  Receive Date: 20250418
  Receipt Date: 20250602
  Transmission Date: 20250716
  Serious: No
  Sender: MERZ
  Company Number: US-MRZWEB-2025040000059

PATIENT

DRUGS (4)
  1. XEOMIN [Suspect]
     Active Substance: INCOBOTULINUMTOXINA
     Indication: Salivary hypersecretion
     Dosage: 155 INTERNATIONAL UNIT
     Dates: start: 20250415, end: 20250415
  2. XEOMIN [Suspect]
     Active Substance: INCOBOTULINUMTOXINA
     Indication: Hyperhidrosis
  3. DYSPORT [BOTULINUM TOXIN TYPE A HAEMAGGLUTININ COMPLEX] [Concomitant]
     Dosage: 450 INTERNATIONAL UNIT
  4. DYSPORT [BOTULINUM TOXIN TYPE A HAEMAGGLUTININ COMPLEX] [Concomitant]
     Dosage: 400 INTERNATIONAL UNIT
     Dates: start: 20241203, end: 20241203

REACTIONS (2)
  - No adverse event [Unknown]
  - Off label use [Unknown]

NARRATIVE: CASE EVENT DATE: 20250401
